FAERS Safety Report 20355049 (Version 1)
Quarter: 2022Q1

REPORT INFORMATION
  Report Type: Spontaneous
  Country: US (occurrence: None)
  Receive Date: 20220119
  Receipt Date: 20220119
  Transmission Date: 20220424
  Serious: Yes (unspecified)
  Sender: FDA-Public Use
  Company Number: None

PATIENT
  Age: 19 Year
  Sex: Female

DRUGS (1)
  1. CASIRIVIMAB\IMDEVIMAB [Suspect]
     Active Substance: CASIRIVIMAB\IMDEVIMAB
     Dosage: OTHER FREQUENCY : ONCE;?

REACTIONS (3)
  - Hot flush [None]
  - Chest discomfort [None]
  - Abdominal discomfort [None]

NARRATIVE: CASE EVENT DATE: 20211204
